FAERS Safety Report 7518489-8 (Version None)
Quarter: 2011Q2

REPORT INFORMATION
  Report Type: 
  Country: None (occurrence: None)
  Receive Date: 20110602
  Receipt Date: 20110522
  Transmission Date: 20111010
  Serious: Yes (Hospitalization, Other)
  Sender: FDA-Public Use
  Company Number: US-BAYER-2011-028340

PATIENT
  Age: 45 Year
  Sex: Female
  Weight: 88.435 kg

DRUGS (7)
  1. MOTRIN [Concomitant]
     Dosage: UNK
     Dates: start: 20030101
  2. ADVIL LIQUI-GELS [Concomitant]
     Dosage: UNK
     Dates: start: 20030101
  3. YAZ [Suspect]
     Indication: CONTRACEPTION
     Dosage: UNK
     Dates: start: 20050101, end: 20100101
  4. PREDNISONE [Concomitant]
     Dosage: 10 MG, UNK
  5. HYDROCODONE BITARTRATE [Concomitant]
  6. CIPRO [Concomitant]
  7. TRAMADOL HCL [Concomitant]
     Dosage: 50 MG, UNK

REACTIONS (5)
  - DEEP VEIN THROMBOSIS [None]
  - INJURY [None]
  - THROMBOPHLEBITIS SUPERFICIAL [None]
  - PULMONARY EMBOLISM [None]
  - THROMBOSIS [None]
